FAERS Safety Report 7539306-6 (Version None)
Quarter: 2011Q2

REPORT INFORMATION
  Report Type: 
  Country: None (occurrence: None)
  Receive Date: 20110610
  Receipt Date: 20110602
  Transmission Date: 20111010
  Serious: Yes (Other)
  Sender: FDA-Public Use
  Company Number: US-ELI_LILLY_AND_COMPANY-US201104001616

PATIENT
  Sex: Female

DRUGS (6)
  1. BYETTA [Suspect]
     Dosage: 10 UG, BID
     Dates: start: 20070409
  2. BYETTA [Suspect]
     Indication: TYPE 2 DIABETES MELLITUS
     Dosage: 5 UG, BID
     Route: 058
     Dates: start: 20070309
  3. PREDNISONE [Concomitant]
  4. GLYBURIDE [Concomitant]
  5. METFORMIN HYDROCHLORIDE [Concomitant]
  6. COUMADIN [Concomitant]

REACTIONS (2)
  - WEIGHT DECREASED [None]
  - THYROID CANCER [None]
